FAERS Safety Report 21629871 (Version 1)
Quarter: 2022Q4

REPORT INFORMATION
  Report Type: Spontaneous
  Country: US (occurrence: US)
  Receive Date: 20221122
  Receipt Date: 20221122
  Transmission Date: 20230113
  Serious: No
  Sender: FDA-Public Use
  Company Number: US-BAUSCH-BL-2022-025486

PATIENT
  Age: 64 Year
  Sex: Female
  Weight: 61.744 kg

DRUGS (5)
  1. PLENVU [Suspect]
     Active Substance: ASCORBIC ACID\POLYETHYLENE GLYCOL 3350\POTASSIUM CHLORIDE\SODIUM ASCORBATE\SODIUM CHLORIDE\SODIUM SU
     Indication: Bowel preparation
     Dosage: AS DIRECTED
     Route: 048
     Dates: start: 20221109, end: 20221110
  2. PRESERVISION AREDS 2 + MULTIVITAMIN [Concomitant]
     Indication: Product used for unknown indication
     Dosage: PRESERVISION AREDS 2 FORMULA + MULTIVITAMIN (1 SOFTGEL QD)
     Route: 048
  3. MINERALS\VITAMINS [Concomitant]
     Active Substance: MINERALS\VITAMINS
     Indication: Product used for unknown indication
     Dosage: PRESERVISION AREDS 2 FORMULA MINIGELS/ 1 SOFTGEL QD
     Route: 048
  4. CALCIUM WITH VITAMIN D [CALCIUM CARBONATE;COLECALCIFEROL] [Concomitant]
     Indication: Product used for unknown indication
     Dosage: CALCIUM WITH VITAMIN D
     Route: 048
  5. VITAMIN D3 [Concomitant]
     Active Substance: CHOLECALCIFEROL
     Indication: Product used for unknown indication
     Route: 048

REACTIONS (7)
  - Tenderness [Unknown]
  - Musculoskeletal chest pain [Unknown]
  - Breast pain [Unknown]
  - Abdominal pain upper [Unknown]
  - Arthralgia [Unknown]
  - Vomiting projectile [Unknown]
  - Pain [Unknown]

NARRATIVE: CASE EVENT DATE: 20221101
